FAERS Safety Report 15780195 (Version 1)
Quarter: 2019Q1

REPORT INFORMATION
  Report Type: Report from Study
  Country: NL (occurrence: NL)
  Receive Date: 20190102
  Receipt Date: 20190102
  Transmission Date: 20190417
  Serious: Yes (Disabling, Other)
  Sender: FDA-Public Use
  Company Number: NL-AMGEN-NLDSL2018158004

PATIENT
  Age: 66 Year
  Sex: Male

DRUGS (3)
  1. RADIUM [Suspect]
     Active Substance: RADIUM
     Indication: PROSTATE CANCER
     Dosage: 6-5, Q4WK
     Route: 065
     Dates: start: 20181017
  2. XGEVA [Suspect]
     Active Substance: DENOSUMAB
     Dosage: UNK
     Route: 058
  3. XGEVA [Suspect]
     Active Substance: DENOSUMAB
     Indication: PROPHYLAXIS
     Dosage: 120 MG, (1.7 ML), Q4WK
     Route: 058
     Dates: start: 20181008

REACTIONS (2)
  - Oedema [Recovered/Resolved]
  - Cancer pain [Recovered/Resolved]

NARRATIVE: CASE EVENT DATE: 201810
